FAERS Safety Report 14820644 (Version 1)
Quarter: 2018Q2

REPORT INFORMATION
  Report Type: Spontaneous
  Country: US (occurrence: US)
  Receive Date: 20180427
  Receipt Date: 20180427
  Transmission Date: 20180711
  Serious: Yes (Other)
  Sender: FDA-Public Use
  Company Number: US-PFIZER INC-2975015

PATIENT
  Age: 73 Year
  Sex: Male
  Weight: 65.5 kg

DRUGS (5)
  1. DOBUTAMINE HCL [Suspect]
     Active Substance: DOBUTAMINE HYDROCHLORIDE
     Indication: ACUTE KIDNEY INJURY
     Dosage: 2.5 MCG/KG/MIN
     Route: 041
  2. DOBUTAMINE HCL [Suspect]
     Active Substance: DOBUTAMINE HYDROCHLORIDE
     Dosage: 2.5 MCG/KG/MIN
     Route: 041
     Dates: start: 20150727
  3. DOBUTAMINE [Suspect]
     Active Substance: DOBUTAMINE\DOBUTAMINE HYDROCHLORIDE
     Dosage: UNK
  4. DOBUTAMINE HCL [Suspect]
     Active Substance: DOBUTAMINE HYDROCHLORIDE
     Dosage: 5 MCG/KG/MIN
     Route: 041
     Dates: start: 20150727
  5. DOBUTAMINE HCL [Suspect]
     Active Substance: DOBUTAMINE HYDROCHLORIDE
     Indication: CARDIOGENIC SHOCK
     Dosage: 5 MCG/KG/MIN
     Route: 041

REACTIONS (1)
  - Drug dependence [Not Recovered/Not Resolved]

NARRATIVE: CASE EVENT DATE: 20150101
